FAERS Safety Report 11833688 (Version 1)
Quarter: 2015Q4

REPORT INFORMATION
  Report Type: Report from Study
  Country: JP (occurrence: JP)
  Receive Date: 20151214
  Receipt Date: 20151214
  Transmission Date: 20160305
  Serious: Yes (Death, Hospitalization, Other)
  Sender: FDA-Public Use
  Company Number: JP-BRISTOL-MYERS SQUIBB COMPANY-BMS-2015-052299

PATIENT
  Age: 69 Year
  Sex: Male
  Weight: 120 kg

DRUGS (1)
  1. NIVOLUMAB [Suspect]
     Active Substance: NIVOLUMAB
     Indication: MALIGNANT MELANOMA
     Dosage: 2 MG/KG, UNK
     Route: 041
     Dates: start: 20150218, end: 20150522

REACTIONS (6)
  - Diarrhoea [Not Recovered/Not Resolved]
  - Ileus [Unknown]
  - Colitis [Recovered/Resolved]
  - Gingivitis [Unknown]
  - Malignant neoplasm progression [Fatal]
  - Glossitis [Unknown]

NARRATIVE: CASE EVENT DATE: 201506
